FAERS Safety Report 5199504-6 (Version None)
Quarter: 2006Q4

REPORT INFORMATION
  Report Type: 
  Country: None (occurrence: None)
  Receive Date: 20061229
  Receipt Date: 20061215
  Transmission Date: 20070319
  Serious: Yes (Death)
  Sender: FDA-Public Use
  Company Number: S06-CAN-05003-01

PATIENT
  Age: 13 Year
  Sex: Male

DRUGS (3)
  1. CELEXA [Suspect]
     Indication: AGGRESSION
     Dates: start: 20030101, end: 20031231
  2. CELEXA [Suspect]
     Indication: NEGATIVISM
     Dates: start: 20030101, end: 20031231
  3. WELLBUTRIN [Concomitant]

REACTIONS (1)
  - COMPLETED SUICIDE [None]
